FAERS Safety Report 4360413-3 (Version None)
Quarter: 2004Q2

REPORT INFORMATION
  Report Type: 
  Country: None (occurrence: None)
  Receive Date: 20040514
  Receipt Date: 20040430
  Transmission Date: 20050107
  Serious: Yes (Hospitalization)
  Sender: FDA-Public Use
  Company Number: 2004-BP-02805NB

PATIENT
  Age: 77 Year
  Sex: Female

DRUGS (3)
  1. MEXITIL [Suspect]
     Indication: VENTRICULAR EXTRASYSTOLES
     Dosage: 250 MG
     Route: 048
     Dates: start: 20040331, end: 20040331
  2. TENORMIN [Suspect]
     Indication: ARRHYTHMIA
     Dosage: 25 MG
     Route: 048
     Dates: start: 20040331, end: 20040331
  3. CRAVIT [Suspect]
     Indication: CONJUNCTIVITIS
     Dates: start: 20040331, end: 20040331

REACTIONS (2)
  - ENANTHEMA [None]
  - RASH [None]
